FAERS Safety Report 14155181 (Version 1)
Quarter: 2017Q4

REPORT INFORMATION
  Report Type: Other
  Country: FR (occurrence: FR)
  Receive Date: 20171103
  Receipt Date: 20171103
  Transmission Date: 20180321
  Serious: Yes (Hospitalization)
  Sender: FDA-Public Use
  Company Number: FR-GE HEALTHCARE-OMPQ-PR-1603S-0368

PATIENT

DRUGS (4)
  1. OMNIPAQUE [Suspect]
     Active Substance: IOHEXOL
     Dosage: UNK UNK, SINGLE
     Route: 042
     Dates: start: 20160226, end: 20160226
  2. OMNIPAQUE [Suspect]
     Active Substance: IOHEXOL
     Indication: PRODUCT USED FOR UNKNOWN INDICATION
     Dosage: UNK UNK, SINGLE
     Route: 042
     Dates: start: 20160223, end: 20160223
  3. METHYLENE BLUE. [Suspect]
     Active Substance: METHYLENE BLUE
     Dosage: UNK
     Route: 042
     Dates: start: 20160226, end: 20160226
  4. CEFAZOLINE PANPHARMA [Suspect]
     Active Substance: CEFAZOLIN SODIUM
     Dosage: 2 GRAM,
     Route: 042
     Dates: start: 20160226, end: 20160226

REACTIONS (1)
  - Acute generalised exanthematous pustulosis [Recovering/Resolving]

NARRATIVE: CASE EVENT DATE: 20160226
